FAERS Safety Report 6269015-5 (Version None)
Quarter: 2009Q3

REPORT INFORMATION
  Report Type: 
  Country: None (occurrence: None)
  Receive Date: 20090715
  Receipt Date: 20090707
  Transmission Date: 20100115
  Serious: Yes (Other)
  Sender: FDA-Public Use
  Company Number: A0796758A

PATIENT
  Age: 0 Year
  Sex: Male

DRUGS (2)
  1. LAMICTAL [Suspect]
     Dosage: 250MG PER DAY
  2. FOLIC ACID [Concomitant]
     Dosage: 5MG PER DAY

REACTIONS (4)
  - CONGENITAL HEART VALVE DISORDER [None]
  - DECREASED APPETITE [None]
  - DRUG EXPOSURE DURING PREGNANCY [None]
  - LETHARGY [None]
